FAERS Safety Report 14673635 (Version 3)
Quarter: 2018Q2

REPORT INFORMATION
  Report Type: Spontaneous
  Country: FR (occurrence: FR)
  Receive Date: 20180323
  Receipt Date: 20180420
  Transmission Date: 20180711
  Serious: Yes (Hospitalization, Other)
  Sender: FDA-Public Use
  Company Number: FR-BAXTER-2018BAX008223

PATIENT
  Age: 30 Year
  Sex: Female
  Weight: 110 kg

DRUGS (30)
  1. METRONIDAZOLE BAXTER 0,5 POUR CENT, SOLUTION INJECTABLE EN POCHE [Suspect]
     Active Substance: METRONIDAZOLE
     Indication: ANTIBIOTIC PROPHYLAXIS
     Dosage: 1.25 MG, UNK
     Route: 042
     Dates: start: 20171101, end: 20171101
  2. POLARAMINE [Suspect]
     Active Substance: DEXCHLORPHENIRAMINE MALEATE
     Indication: RASH PRURITIC
     Dosage: 1 DF, QD
     Route: 042
     Dates: start: 20171102, end: 20171102
  3. GENTAMICIN. [Suspect]
     Active Substance: GENTAMICIN
     Route: 042
  4. BRIDION [Suspect]
     Active Substance: SUGAMMADEX
     Indication: NEUROMUSCULAR BLOCKADE REVERSAL
     Dosage: SOLUTION INJECTABLE
     Route: 042
     Dates: start: 20171031, end: 20171102
  5. DAFALGAN CODEINE [Suspect]
     Active Substance: ACETAMINOPHEN\CODEINE PHOSPHATE
     Indication: NEUROMUSCULAR BLOCKADE REVERSAL
     Route: 065
  6. XYZALL [Suspect]
     Active Substance: LEVOCETIRIZINE DIHYDROCHLORIDE
     Dosage: 5 MG, UNK
     Route: 048
  7. DAFALGAN CODEINE [Suspect]
     Active Substance: ACETAMINOPHEN\CODEINE PHOSPHATE
     Indication: ANTIBIOTIC PROPHYLAXIS
     Route: 042
     Dates: start: 20171101, end: 20171101
  8. DAFALGAN CODEINE [Suspect]
     Active Substance: ACETAMINOPHEN\CODEINE PHOSPHATE
     Indication: RASH PRURITIC
     Route: 042
  9. DAFALGAN CODEINE [Suspect]
     Active Substance: ACETAMINOPHEN\CODEINE PHOSPHATE
     Indication: PROCEDURAL PAIN
     Dosage: 1 DF, (1T)
     Route: 048
  10. LEXOMIL [Suspect]
     Active Substance: BROMAZEPAM
     Indication: ANXIETY
     Dosage: OBLONG TRIPLE SCORED TABLET
     Route: 048
     Dates: start: 20171101, end: 20171101
  11. PARACETAMOL [Suspect]
     Active Substance: ACETAMINOPHEN
     Dosage: 1 DF, UNK
     Route: 042
     Dates: start: 20171031, end: 20171101
  12. XYZALL [Suspect]
     Active Substance: LEVOCETIRIZINE DIHYDROCHLORIDE
     Indication: RASH PRURITIC
     Route: 048
     Dates: start: 20171101, end: 20171101
  13. DROPERIDOL. [Suspect]
     Active Substance: DROPERIDOL
     Indication: AGITATION
     Dosage: 1.25 MG, UNK
     Route: 042
     Dates: start: 20171031, end: 20171102
  14. DAFALGAN CODEINE [Suspect]
     Active Substance: ACETAMINOPHEN\CODEINE PHOSPHATE
     Indication: AGITATION
     Route: 042
     Dates: start: 20171031, end: 20171102
  15. DAFALGAN CODEINE [Suspect]
     Active Substance: ACETAMINOPHEN\CODEINE PHOSPHATE
     Route: 065
  16. PARACETAMOL [Suspect]
     Active Substance: ACETAMINOPHEN
     Indication: PROCEDURAL PAIN
     Dosage: 1 DF, QID
     Route: 042
     Dates: start: 20171031, end: 20171101
  17. LIBRADOL [Suspect]
     Active Substance: ACETAMINOPHEN
     Indication: PROCEDURAL PAIN
     Route: 042
     Dates: start: 20171031, end: 20171101
  18. MORPHINE SULFATE. [Suspect]
     Active Substance: MORPHINE SULFATE
     Indication: PROCEDURAL PAIN
     Dosage: 3 MG, Q10 MINUTES
     Route: 042
     Dates: start: 20171031, end: 20171101
  19. DAFALGAN CODEINE [Suspect]
     Active Substance: ACETAMINOPHEN\CODEINE PHOSPHATE
     Dosage: 1DF, QID
     Route: 048
     Dates: start: 20171101, end: 20171101
  20. DAFALGAN CODEINE [Suspect]
     Active Substance: ACETAMINOPHEN\CODEINE PHOSPHATE
     Indication: PAIN
     Dosage: 1DF, QID
     Route: 048
     Dates: start: 20171101, end: 20171101
  21. DAFALGAN CODEINE [Suspect]
     Active Substance: ACETAMINOPHEN\CODEINE PHOSPHATE
     Route: 065
  22. DAFALGAN CODEINE [Suspect]
     Active Substance: ACETAMINOPHEN\CODEINE PHOSPHATE
     Route: 065
  23. METRONIDAZOLE BAXTER 0,5 POUR CENT, SOLUTION INJECTABLE EN POCHE [Suspect]
     Active Substance: METRONIDAZOLE
     Dosage: 500 MG, UNK
     Route: 042
     Dates: start: 20171101, end: 20171101
  24. POLARAMINE [Suspect]
     Active Substance: DEXCHLORPHENIRAMINE MALEATE
     Dosage: 1 DF, UNK
     Route: 042
  25. GENTAMICIN. [Suspect]
     Active Substance: GENTAMICIN
     Indication: ANTIBIOTIC PROPHYLAXIS
     Dosage: SOLUTION FOR INJECTION/INFUSION, 3.2 G, UNK
     Route: 042
     Dates: start: 20171101, end: 20171101
  26. BRIDION [Suspect]
     Active Substance: SUGAMMADEX
     Dosage: 200 MG, UNK
     Route: 042
  27. DAFALGAN CODEINE [Suspect]
     Active Substance: ACETAMINOPHEN\CODEINE PHOSPHATE
     Route: 065
  28. LEXOMIL [Suspect]
     Active Substance: BROMAZEPAM
     Dosage: 3 MG, UNK
     Route: 048
  29. LOVENOX [Suspect]
     Active Substance: ENOXAPARIN SODIUM
     Indication: THROMBOSIS PROPHYLAXIS
     Dosage: 8000 IU, QD
     Route: 042
     Dates: start: 20171031, end: 20171101
  30. DROPERIDOL. [Suspect]
     Active Substance: DROPERIDOL
     Dosage: 1.25 MG, UNK
     Route: 042

REACTIONS (1)
  - Drug reaction with eosinophilia and systemic symptoms [Recovered/Resolved]

NARRATIVE: CASE EVENT DATE: 20171031
